FAERS Safety Report 10287670 (Version 2)
Quarter: 2014Q3

REPORT INFORMATION
  Report Type: Spontaneous
  Country: US (occurrence: US)
  Receive Date: 20140709
  Receipt Date: 20140709
  Transmission Date: 20150326
  Serious: No
  Sender: FDA-Public Use
  Company Number: US-GILEAD-2013-0078387

PATIENT
  Sex: Female

DRUGS (5)
  1. LETAIRIS [Suspect]
     Active Substance: AMBRISENTAN
     Indication: PULMONARY HYPERTENSION
     Dosage: 5 MG, QD
     Dates: start: 20130429
  2. LETAIRIS [Suspect]
     Active Substance: AMBRISENTAN
     Indication: PULMONARY EMBOLISM
  3. POTASSIUM [Concomitant]
     Active Substance: POTASSIUM
  4. ADCIRCA [Concomitant]
     Active Substance: TADALAFIL
  5. LASIX [Concomitant]
     Active Substance: FUROSEMIDE

REACTIONS (5)
  - Oedema [Unknown]
  - Dyspnoea [Unknown]
  - Unevaluable event [Recovering/Resolving]
  - Nausea [Recovering/Resolving]
  - Dizziness [Unknown]
